FAERS Safety Report 7730570-7 (Version None)
Quarter: 2011Q3

REPORT INFORMATION
  Report Type: 
  Country: None (occurrence: None)
  Receive Date: 20110906
  Receipt Date: 20110822
  Transmission Date: 20111222
  Serious: Yes (Other)
  Sender: FDA-Public Use
  Company Number: CA-BAYER-2011-078706

PATIENT
  Age: 37 Year
  Weight: 54.875 kg

DRUGS (1)
  1. NAPROXEN (ALEVE) [Suspect]
     Indication: ARTHRALGIA
     Dosage: 220 MG, ONCE
     Route: 048
     Dates: start: 20110821, end: 20110821

REACTIONS (5)
  - PRURITUS GENERALISED [None]
  - PRURITUS [None]
  - SWELLING FACE [None]
  - HYPERSENSITIVITY [None]
  - LOCALISED OEDEMA [None]
